FAERS Safety Report 18047771 (Version 1)
Quarter: 2020Q3

REPORT INFORMATION
  Report Type: Spontaneous
  Country: US (occurrence: US)
  Receive Date: 20200720
  Receipt Date: 20200720
  Transmission Date: 20201103
  Serious: No
  Sender: FDA-Public Use
  Company Number: None

PATIENT
  Age: 80 Year
  Sex: Female
  Weight: 81.7 kg

DRUGS (2)
  1. REMDESIVIR. [Suspect]
     Active Substance: REMDESIVIR
     Indication: COVID-19 PNEUMONIA
     Route: 040
     Dates: start: 20200710, end: 20200714
  2. MEROPENEM. [Concomitant]
     Active Substance: MEROPENEM
     Dates: start: 20200716, end: 20200720

REACTIONS (3)
  - Acute hepatic failure [None]
  - Ischaemic hepatitis [None]
  - International normalised ratio increased [None]

NARRATIVE: CASE EVENT DATE: 20200719
